FAERS Safety Report 17740265 (Version 2)
Quarter: 2020Q2

REPORT INFORMATION
  Report Type: Spontaneous
  Country: US (occurrence: US)
  Receive Date: 20200504
  Receipt Date: 20200512
  Transmission Date: 20200714
  Serious: Yes (Other)
  Sender: FDA-Public Use
  Company Number: US-PFIZER INC-2020175880

PATIENT
  Sex: Female

DRUGS (2)
  1. LORBRENA [Suspect]
     Active Substance: LORLATINIB
     Dosage: UNK
  2. DILTIAZEM HCL [Suspect]
     Active Substance: DILTIAZEM HYDROCHLORIDE
     Dosage: UNK

REACTIONS (8)
  - Muscle spasticity [Unknown]
  - Neutrophil count decreased [Unknown]
  - Motor dysfunction [Unknown]
  - Lung disorder [Unknown]
  - Speech disorder [Unknown]
  - Therapeutic response delayed [Unknown]
  - Liver disorder [Unknown]
  - Muscle spasms [Unknown]
